FAERS Safety Report 18766272 (Version 2)
Quarter: 2022Q3

REPORT INFORMATION
  Report Type: Spontaneous
  Country: US (occurrence: US)
  Receive Date: 20210121
  Receipt Date: 20220902
  Transmission Date: 20221027
  Serious: Yes (Other)
  Sender: FDA-Public Use
  Company Number: US-SA-2021SA010825

PATIENT
  Age: 72 Year
  Sex: Male

DRUGS (1)
  1. ZANTAC [Suspect]
     Active Substance: RANITIDINE HYDROCHLORIDE
     Indication: Dyspepsia
     Dosage: 150 MG, QD
     Dates: start: 199603, end: 202002

REACTIONS (2)
  - Prostate cancer stage III [Unknown]
  - Skin cancer [Recovering/Resolving]

NARRATIVE: CASE EVENT DATE: 20190101
